FAERS Safety Report 12965288 (Version 2)
Quarter: 2016Q4

REPORT INFORMATION
  Report Type: Spontaneous
  Country: US (occurrence: US)
  Receive Date: 20161122
  Receipt Date: 20161229
  Transmission Date: 20170207
  Serious: Yes (Hospitalization, Other)
  Sender: FDA-Public Use
  Company Number: US-SAOL THERAPEUTICS-2016SAO01084

PATIENT
  Age: 72 Year
  Sex: Male

DRUGS (18)
  1. LASIX [Concomitant]
     Active Substance: FUROSEMIDE
  2. PROZAC [Concomitant]
     Active Substance: FLUOXETINE HYDROCHLORIDE
  3. HYDROMORPHONE [Suspect]
     Active Substance: HYDROMORPHONE
     Dosage: 3.502 MG, \DAY
     Route: 037
  4. SEROQUEL [Concomitant]
     Active Substance: QUETIAPINE FUMARATE
  5. PREVACID [Concomitant]
     Active Substance: LANSOPRAZOLE
  6. DULCOLAX NOS [Concomitant]
     Active Substance: BISACODYL OR DOCUSATE SODIUM
  7. ZOCOR [Concomitant]
     Active Substance: SIMVASTATIN
  8. OXYCODONE [Concomitant]
     Active Substance: OXYCODONE
  9. DESYREL [Concomitant]
     Active Substance: TRAZODONE HYDROCHLORIDE
  10. ASA [Concomitant]
     Active Substance: ASPIRIN
  11. COMPOUNDED BACLOFEN [Suspect]
     Active Substance: BACLOFEN
     Indication: MUSCLE SPASMS
     Dosage: UNK
     Dates: start: 201103
  12. BUPIVACAINE. [Suspect]
     Active Substance: BUPIVACAINE
     Dosage: 3.502 MG, \DAY
     Route: 037
  13. MOTRIN [Concomitant]
     Active Substance: IBUPROFEN
  14. SENNA PLUS [Concomitant]
     Active Substance: DOCUSATE SODIUM\SENNOSIDES\SENNOSIDES A AND B
     Dosage: UNK
     Dates: start: 201610
  15. CLONIDINE. [Suspect]
     Active Substance: CLONIDINE
     Dosage: 131.33 ?G, \DAY
     Route: 037
  16. COMPOUNDED BACLOFEN [Suspect]
     Active Substance: BACLOFEN
     Indication: PAIN
     Dosage: 87.55 ?G, \DAY
  17. FENTANYL. [Suspect]
     Active Substance: FENTANYL
     Dosage: 87.55 ?G, \DAY
     Route: 037
  18. HUMALOG [Concomitant]
     Active Substance: INSULIN LISPRO

REACTIONS (7)
  - Cerebrovascular accident [Unknown]
  - Dementia [Unknown]
  - Respiratory failure [Unknown]
  - Fall [Recovered/Resolved]
  - Subdural haematoma [Unknown]
  - Off label use [Unknown]
  - Encephalopathy [Unknown]

NARRATIVE: CASE EVENT DATE: 201606
